FAERS Safety Report 11090574 (Version 1)
Quarter: 2015Q2

REPORT INFORMATION
  Report Type: Spontaneous
  Country: JP (occurrence: None)
  Receive Date: 20150501
  Receipt Date: 20150501
  Transmission Date: 20150821
  Serious: Yes (Other)
  Sender: FDA-Public Use
  Company Number: 2015-JP002019

PATIENT
  Age: 69 Year
  Sex: Female
  Weight: 68 kg

DRUGS (8)
  1. URSODEOXYCHOLIC ACID [Concomitant]
     Active Substance: URSODIOL
  2. REGNITE (GABAPENTIN ENACARBIL) TABLET, 300MG [Suspect]
     Active Substance: GABAPENTIN ENACARBIL
     Indication: RESTLESS LEGS SYNDROME
     Dosage: 300 MG, ONCE DAILY, ORAL
     Route: 048
     Dates: start: 20130917
  3. ENDOXAN (CYCLOPHOSPHAMIDE) [Concomitant]
     Active Substance: CYCLOPHOSPHAMIDE
  4. LYRICA [Concomitant]
     Active Substance: PREGABALIN
  5. PREDONINE (PREDNISOLONE) [Concomitant]
  6. MUCOSTA (REBAMIPIDE) [Concomitant]
  7. CELECOX (CELECOXIB) [Concomitant]
     Active Substance: CELECOXIB
  8. SODIUM (RABEPRAZOLE (RABERPRAZOLE SODIUM) [Concomitant]

REACTIONS (3)
  - Urticaria [None]
  - Intentional product use issue [None]
  - Contusion [None]

NARRATIVE: CASE EVENT DATE: 20130917
